FAERS Safety Report 5165607-5 (Version None)
Quarter: 2006Q4

REPORT INFORMATION
  Report Type: 
  Country: None (occurrence: None)
  Receive Date: 20061206
  Receipt Date: 20061127
  Transmission Date: 20070319
  Serious: Yes (Hospitalization)
  Sender: FDA-Public Use
  Company Number: SE-BRISTOL-MYERS SQUIBB COMPANY-13590401

PATIENT
  Age: 42 Year
  Sex: Female

DRUGS (4)
  1. REYATAZ [Suspect]
  2. TRUVADA [Suspect]
  3. NORVIR [Suspect]
  4. IMOVANE [Concomitant]

REACTIONS (2)
  - ABORTION SPONTANEOUS [None]
  - PREGNANCY [None]
